FAERS Safety Report 21162790 (Version 1)
Quarter: 2022Q3

REPORT INFORMATION
  Report Type: Report from Study
  Country: US (occurrence: US)
  Receive Date: 20220802
  Receipt Date: 20220802
  Transmission Date: 20221027
  Serious: Yes (Other)
  Sender: FDA-Public Use
  Company Number: US-AMGEN-USACT2022130807

PATIENT
  Age: 62 Year
  Sex: Male
  Weight: 108.3 kg

DRUGS (1)
  1. CARFILZOMIB [Suspect]
     Active Substance: CARFILZOMIB
     Indication: Plasma cell myeloma
     Dosage: UNK UNK, PER CHEMO REGIM
     Route: 042

REACTIONS (2)
  - Nasal congestion [Unknown]
  - Paraesthesia [Unknown]

NARRATIVE: CASE EVENT DATE: 20220728
